FAERS Safety Report 18392875 (Version 3)
Quarter: 2021Q3

REPORT INFORMATION
  Report Type: Spontaneous
  Country: CA (occurrence: CA)
  Receive Date: 20201016
  Receipt Date: 20210921
  Transmission Date: 20211014
  Serious: Yes (Hospitalization, Other)
  Sender: FDA-Public Use
  Company Number: CA-SAMSUNG BIOEPIS-SB-2020-31703

PATIENT
  Age: 90 Year
  Sex: Male

DRUGS (5)
  1. MESALAZINE [Concomitant]
     Active Substance: MESALAMINE
     Indication: PRODUCT USED FOR UNKNOWN INDICATION
     Dosage: UNKNOWN
     Route: 065
  2. INFLIXIMAB [Suspect]
     Active Substance: INFLIXIMAB
     Indication: COLITIS ULCERATIVE
  3. HYDROCORTISONE. [Concomitant]
     Active Substance: HYDROCORTISONE
     Indication: PREMEDICATION
     Route: 042
  4. INFLIXIMAB [Suspect]
     Active Substance: INFLIXIMAB
     Indication: CROHN^S DISEASE
     Route: 042
  5. DIPHENHYDRAMINE. [Concomitant]
     Active Substance: DIPHENHYDRAMINE
     Indication: PREMEDICATION
     Route: 048

REACTIONS (16)
  - Blood pressure fluctuation [Unknown]
  - Weight decreased [Unknown]
  - Musculoskeletal stiffness [Unknown]
  - Tooth disorder [Unknown]
  - Diarrhoea [Unknown]
  - Malaise [Unknown]
  - Cardiac disorder [Unknown]
  - Pruritus [Unknown]
  - Weight increased [Unknown]
  - Condition aggravated [Unknown]
  - Blood pressure increased [Unknown]
  - Weight fluctuation [Unknown]
  - Body temperature decreased [Unknown]
  - Muscle twitching [Unknown]
  - Blood pressure decreased [Unknown]
  - Heart rate decreased [Unknown]
